FAERS Safety Report 17908521 (Version 1)
Quarter: 2020Q2

REPORT INFORMATION
  Report Type: Spontaneous
  Country: CN (occurrence: CN)
  Receive Date: 20200617
  Receipt Date: 20200617
  Transmission Date: 20200714
  Serious: Yes (Other)
  Sender: FDA-Public Use
  Company Number: NVSC2020CN167635

PATIENT
  Age: 74 Year
  Sex: Male
  Weight: 52 kg

DRUGS (2)
  1. ROSUVASTATIN CALCIUM. [Suspect]
     Active Substance: ROSUVASTATIN CALCIUM
     Dosage: 5 MG, QN
     Route: 048
     Dates: start: 20200602, end: 20200606
  2. ROSUVASTATIN CALCIUM. [Suspect]
     Active Substance: ROSUVASTATIN CALCIUM
     Indication: CEREBRAL INFARCTION
     Dosage: 10 MG, QN
     Route: 048
     Dates: start: 20200523, end: 20200601

REACTIONS (1)
  - Hepatic enzyme increased [Recovering/Resolving]

NARRATIVE: CASE EVENT DATE: 20200602
